FAERS Safety Report 11122960 (Version 1)
Quarter: 2015Q2

REPORT INFORMATION
  Report Type: Spontaneous
  Country: US (occurrence: US)
  Receive Date: 20150519
  Receipt Date: 20150519
  Transmission Date: 20150821
  Serious: No
  Sender: FDA-Public Use
  Company Number: US-PFIZER INC-2015156939

PATIENT
  Age: 68 Year
  Sex: Female
  Weight: 54 kg

DRUGS (1)
  1. LYRICA [Suspect]
     Active Substance: PREGABALIN
     Indication: FEMALE SEXUAL AROUSAL DISORDER
     Dosage: 300 MG, 1X/DAY (THREE 100 MG CAPSULES)
     Route: 048
     Dates: start: 201412

REACTIONS (2)
  - Feeling abnormal [Unknown]
  - Impaired driving ability [Unknown]
